FAERS Safety Report 13575549 (Version 1)
Quarter: 2017Q2

REPORT INFORMATION
  Report Type: Spontaneous
  Country: US (occurrence: US)
  Receive Date: 20170524
  Receipt Date: 20170524
  Transmission Date: 20170830
  Serious: No
  Sender: FDA-Public Use
  Company Number: US-TEVA-752845ACC

PATIENT
  Sex: Male

DRUGS (1)
  1. ESZOPICLONE TEVA [Suspect]
     Active Substance: ESZOPICLONE
     Dates: start: 201703

REACTIONS (6)
  - Paranasal sinus discomfort [Unknown]
  - Drug effect decreased [Unknown]
  - Eye swelling [Unknown]
  - Product substitution issue [None]
  - Headache [Recovered/Resolved]
  - Hyperhidrosis [Unknown]
